FAERS Safety Report 9155852 (Version 3)
Quarter: 2013Q1

REPORT INFORMATION
  Report Type: Report from Study
  Country: ES (occurrence: ES)
  Receive Date: 20130311
  Receipt Date: 20130322
  Transmission Date: 20140127
  Serious: Yes (Other)
  Sender: FDA-Public Use
  Company Number: ES-VERTEX PHARMACEUTICALS INC.-2013-003297

PATIENT
  Sex: Female

DRUGS (4)
  1. INCIVO [Suspect]
     Indication: HEPATITIS C
     Route: 048
     Dates: start: 20120427
  2. RIBAVIRIN [Suspect]
     Indication: CHRONIC HEPATITIS C
     Dosage: DOSAGE FORM: UNSPECIFIED
     Route: 065
  3. RIBAVIRIN [Suspect]
     Dosage: DOSAGE FORM: UNSPECIFIED, FROM WEEK 18 TO WEEK 27
     Route: 065
  4. PEGINTERFERON ALFA-2B [Suspect]
     Indication: CHRONIC HEPATITIS C
     Dosage: DOSAGE FORM: UNSPECIFIED
     Route: 065

REACTIONS (13)
  - Oedema [Unknown]
  - Anaemia [Unknown]
  - Rash generalised [Unknown]
  - Dry mouth [Unknown]
  - Dry skin [Unknown]
  - Asthenia [Unknown]
  - Pallor [Unknown]
  - Mucosal discolouration [Unknown]
  - Purpura [Unknown]
  - Rash erythematous [Unknown]
  - Skin exfoliation [Unknown]
  - Dysgeusia [Unknown]
  - Solar dermatitis [Unknown]
